FAERS Safety Report 20797491 (Version 4)
Quarter: 2023Q1

REPORT INFORMATION
  Report Type: Report from Study
  Country: US (occurrence: US)
  Receive Date: 20220506
  Receipt Date: 20230215
  Transmission Date: 20230418
  Serious: No
  Sender: FDA-Public Use
  Company Number: US-NOVARTISTESTPH-NVSC2022US104764

PATIENT
  Age: 1 Year
  Sex: Male
  Weight: 13 kg

DRUGS (1)
  1. ZOLGENSMA [Suspect]
     Active Substance: ONASEMNOGENE ABEPARVOVEC-XIOI
     Indication: Spinal muscular atrophy
     Dosage: 8.3 MG, ONCE/SINGLE (71.5 ML) (ONE SINGLE DOSE).
     Route: 042
     Dates: start: 20220427, end: 20220427

REACTIONS (6)
  - Asthenia [Unknown]
  - Hyperhidrosis [Unknown]
  - Tremor [Unknown]
  - Eye discharge [Unknown]
  - Pyrexia [Unknown]
  - Vomiting [Unknown]

NARRATIVE: CASE EVENT DATE: 20220503
